FAERS Safety Report 4442754-4 (Version None)
Quarter: 2004Q3

REPORT INFORMATION
  Report Type: 
  Country: None (occurrence: None)
  Receive Date: 20040903
  Receipt Date: 20040611
  Transmission Date: 20050211
  Serious: Yes (Other)
  Sender: FDA-Public Use
  Company Number: 2004UW12323

PATIENT
  Age: 63 Year
  Sex: Female
  Weight: 65.7716 kg

DRUGS (6)
  1. CRESTOR [Suspect]
     Indication: BLOOD CHOLESTEROL INCREASED
     Dosage: 10 MG DAILY PO
     Route: 048
     Dates: start: 20040528
  2. GLUCOVANCE [Concomitant]
  3. AVANDIA [Concomitant]
  4. ACCUPRIL [Concomitant]
  5. VIOXX [Concomitant]
  6. ASPIRIN [Concomitant]

REACTIONS (3)
  - BLOOD PRESSURE INCREASED [None]
  - HEART RATE INCREASED [None]
  - VISUAL ACUITY REDUCED [None]
